FAERS Safety Report 7436857-X (Version None)
Quarter: 2011Q2

REPORT INFORMATION
  Report Type: 
  Country: None (occurrence: None)
  Receive Date: 20110426
  Receipt Date: 20110421
  Transmission Date: 20111010
  Serious: No
  Sender: FDA-Public Use
  Company Number: US-PFIZER INC-2011087641

PATIENT
  Sex: Male

DRUGS (2)
  1. LIPITOR [Concomitant]
     Dosage: 10 MG, 1X/DAY EACH MORNING
  2. XALATAN [Suspect]
     Indication: GLAUCOMA
     Dosage: UNK

REACTIONS (1)
  - INTRAOCULAR PRESSURE INCREASED [None]
